FAERS Safety Report 13085962 (Version 1)
Quarter: 2017Q1

REPORT INFORMATION
  Report Type: Report from Study
  Country: FR (occurrence: FR)
  Receive Date: 20170104
  Receipt Date: 20170104
  Transmission Date: 20170428
  Serious: Yes (Other)
  Sender: FDA-Public Use
  Company Number: FR-PFIZER INC-2017000666

PATIENT

DRUGS (3)
  1. OXALIPLATIN. [Suspect]
     Active Substance: OXALIPLATIN
     Indication: NEOPLASM
     Dosage: 85 MG/M2, CYCLIC (EVERY 2 WEEKS, DELIVERED ON DAY 1 AND 14)
     Route: 042
  2. IRINOTECAN HCL [Suspect]
     Active Substance: IRINOTECAN HYDROCHLORIDE
     Indication: NEOPLASM
     Dosage: 180 MG/M2, CYCLIC (EVERY 2 WEEKS, DELIVERED ON DAY 1 AND DAY 14)
     Route: 042
  3. CAPECITABINE. [Suspect]
     Active Substance: CAPECITABINE
     Indication: NEOPLASM
     Dosage: 1500 MG/M2, CYCLIC (2X/DAY, FROM DAY 1 TO DAY 8)
     Route: 048

REACTIONS (1)
  - Lung disorder [Unknown]
